FAERS Safety Report 5781611-8 (Version None)
Quarter: 2008Q2

REPORT INFORMATION
  Report Type: 
  Country: None (occurrence: None)
  Receive Date: 20080623
  Receipt Date: 20080610
  Transmission Date: 20081010
  Serious: Yes (Other)
  Sender: FDA-Public Use
  Company Number: IT-AMGEN-UK286124

PATIENT
  Age: 60 Year
  Sex: Female

DRUGS (3)
  1. KINERET [Suspect]
     Indication: POLYARTHRITIS
     Route: 058
     Dates: start: 20050401
  2. PREDNISONE TAB [Concomitant]
     Route: 048
  3. METHOTREXATE [Concomitant]
     Route: 065

REACTIONS (1)
  - BRONCHOPNEUMONIA [None]
